FAERS Safety Report 21921588 (Version 1)
Quarter: 2023Q1

REPORT INFORMATION
  Report Type: Spontaneous
  Country: US (occurrence: US)
  Receive Date: 20230127
  Receipt Date: 20230127
  Transmission Date: 20230418
  Serious: No
  Sender: FDA-Public Use
  Company Number: US-MYLANLABS-2023M1006686

PATIENT
  Sex: Female
  Weight: 85.2 kg

DRUGS (1)
  1. LATANOPROST [Suspect]
     Active Substance: LATANOPROST
     Indication: Glaucoma
     Dosage: 1 GTT DROPS, QOD (EVENING)
     Route: 047

REACTIONS (2)
  - Off label use [Unknown]
  - Product leakage [Unknown]
